APPROVED DRUG PRODUCT: NURTEC ODT
Active Ingredient: RIMEGEPANT SULFATE
Strength: EQ 75MG BASE
Dosage Form/Route: TABLET, ORALLY DISINTEGRATING;ORAL
Application: N212728 | Product #001
Applicant: PFIZER INC
Approved: Feb 27, 2020 | RLD: Yes | RS: Yes | Type: RX

PATENTS:
Patent 11083724 | Expires: Mar 25, 2039
Patent 11083724 | Expires: Mar 25, 2039
Patent 8314117 | Expires: Feb 27, 2034
Patent 8314117 | Expires: Feb 27, 2034
Patent 8759372 | Expires: Feb 25, 2033